FAERS Safety Report 19611684 (Version 1)
Quarter: 2021Q3

REPORT INFORMATION
  Report Type: Report from Study
  Country: GB (occurrence: GB)
  Receive Date: 20210726
  Receipt Date: 20210726
  Transmission Date: 20211014
  Serious: Yes (Death, Hospitalization, Other)
  Sender: FDA-Public Use
  Company Number: GB-TEVA-2021-GB-1934828

PATIENT
  Age: 67 Year
  Sex: Male

DRUGS (7)
  1. SANDOSTATIN LAR DEPOT [Suspect]
     Active Substance: OCTREOTIDE ACETATE
     Dosage: 30 MG, Q3W
     Route: 030
  2. OXYCODONE HYDROCHLORIDE. [Concomitant]
     Active Substance: OXYCODONE HYDROCHLORIDE
     Dosage: 30 ML DAILY;
     Dates: start: 20210626, end: 20210627
  3. TAMADOL [Concomitant]
     Active Substance: TRAMADOL HYDROCHLORIDE
     Dosage: 2 DOSAGE FORMS, AS ADVISED BY GP
  4. SANDOSTATIN LAR DEPOT [Suspect]
     Active Substance: OCTREOTIDE ACETATE
     Indication: NEUROENDOCRINE TUMOUR
     Dosage: 30 MG/KG, QMO (EVERY 21 DAYS)
     Route: 030
     Dates: start: 202004
  5. OMEPRAZOLE. [Suspect]
     Active Substance: OMEPRAZOLE
     Indication: PRODUCT USED FOR UNKNOWN INDICATION
     Dosage: 20 MG
     Route: 065
     Dates: start: 20210626
  6. SANDOSTATIN LAR DEPOT [Suspect]
     Active Substance: OCTREOTIDE ACETATE
     Dosage: 30 MG, QMO
     Route: 030
     Dates: start: 202004
  7. DEXAMETHASONE. [Concomitant]
     Active Substance: DEXAMETHASONE
     Indication: PRODUCT USED FOR UNKNOWN INDICATION
     Dosage: 4 MILLIGRAM DAILY;
     Route: 065
     Dates: start: 20210626

REACTIONS (15)
  - Flushing [Unknown]
  - Inappropriate schedule of product administration [Unknown]
  - Blood pressure diastolic increased [Unknown]
  - Seizure [Unknown]
  - Erythema [Unknown]
  - Feeling abnormal [Unknown]
  - Arthralgia [Recovered/Resolved]
  - Blood pressure systolic decreased [Unknown]
  - Dysarthria [Unknown]
  - Renal disorder [Unknown]
  - Fall [Unknown]
  - Cerebrovascular accident [Unknown]
  - Death [Fatal]
  - Loss of consciousness [Unknown]
  - Bell^s palsy [Unknown]

NARRATIVE: CASE EVENT DATE: 20201201
